FAERS Safety Report 4779852-1 (Version None)
Quarter: 2005Q3

REPORT INFORMATION
  Report Type: 
  Country: None (occurrence: None)
  Receive Date: 20050914
  Receipt Date: 20041119
  Transmission Date: 20060218
  Serious: Yes (Hospitalization, Other)
  Sender: FDA-Public Use
  Company Number: 163-20785-04030484

PATIENT
  Age: 68 Year
  Sex: Male
  Weight: 85 kg

DRUGS (23)
  1. THALOMID [Suspect]
     Indication: MULTIPLE MYELOMA
     Dosage: 200 MG, DAILY, ORAL
     Route: 048
     Dates: start: 20030820, end: 20031224
  2. THALOMID [Suspect]
     Indication: MULTIPLE MYELOMA
     Dosage: 200 MG, DAILY, ORAL
     Route: 048
     Dates: start: 20031229, end: 20040107
  3. MELPHALAN (MELPHALAN) (INJECTION FOR INFUSION) [Suspect]
     Indication: MULTIPLE MYELOMA
     Dosage: 390 MG, DAILY, INTRAVENOUS
     Route: 042
     Dates: start: 20040125
  4. CYCLOPHOSPHAMIDE [Suspect]
     Indication: MULTIPLE MYELOMA
     Dosage: 29 MG, X 4 DAYS, INTRAVENOUS;  780 MG, X 4 DAYS, INTRAVENOUS
     Route: 042
     Dates: start: 20031117, end: 20031120
  5. CYCLOPHOSPHAMIDE [Suspect]
     Indication: MULTIPLE MYELOMA
     Dosage: 29 MG, X 4 DAYS, INTRAVENOUS;  780 MG, X 4 DAYS, INTRAVENOUS
     Route: 042
     Dates: start: 20031218, end: 20031221
  6. DEXAMETHASONE [Suspect]
     Indication: MULTIPLE MYELOMA
     Dosage: 40 MG, X 4 DAYS, ORAL
     Route: 048
     Dates: start: 20031117, end: 20031120
  7. DEXAMETHASONE [Suspect]
     Indication: MULTIPLE MYELOMA
     Dosage: 40 MG, X 4 DAYS, ORAL
     Route: 048
     Dates: start: 20031218, end: 20031221
  8. ETOPOSIDE [Suspect]
     Indication: MULTIPLE MYELOMA
     Dosage: 78 MG
     Dates: start: 20031218, end: 20031221
  9. CISPLATIN [Suspect]
     Indication: MULTIPLE MYELOMA
     Dosage: 29 MG
     Dates: start: 20031218, end: 20031221
  10. ADRIAMYCIN PFS [Suspect]
     Indication: MULTIPLE MYELOMA
     Dosage: 29 MG, X4D, INTRAVENOUS
     Route: 042
     Dates: start: 20031117, end: 20031120
  11. PROTONIX [Concomitant]
  12. DETROL LA [Concomitant]
  13. LORTAB [Concomitant]
  14. SYNTHROID [Concomitant]
  15. PAXIL [Concomitant]
  16. CA CARBONATE (CALCIUM CARBONATE) [Concomitant]
  17. PROCRIT [Concomitant]
  18. TEQUIN [Concomitant]
  19. DIFLUCAN [Concomitant]
  20. FLAGYL [Concomitant]
  21. ACYCLOVIR [Concomitant]
  22. RANITIDINE [Concomitant]
  23. ZYRTEC [Concomitant]

REACTIONS (21)
  - ABDOMINAL PAIN LOWER [None]
  - C-REACTIVE PROTEIN INCREASED [None]
  - DEEP VEIN THROMBOSIS [None]
  - DEHYDRATION [None]
  - DIARRHOEA [None]
  - ESCHERICHIA BACTERAEMIA [None]
  - FEBRILE NEUTROPENIA [None]
  - HAEMATURIA [None]
  - LOSS OF CONSCIOUSNESS [None]
  - MUCOSAL INFLAMMATION [None]
  - MUSCLE SPASMS [None]
  - NEUTROPENIA [None]
  - OESOPHAGITIS [None]
  - PERIRECTAL ABSCESS [None]
  - PROCTALGIA [None]
  - PULMONARY EMBOLISM [None]
  - PURULENT DISCHARGE [None]
  - PYREXIA [None]
  - SYNCOPE [None]
  - THROMBOCYTOPENIA [None]
  - WHITE BLOOD CELL COUNT DECREASED [None]
